FAERS Safety Report 4476838-1 (Version None)
Quarter: 2004Q4

REPORT INFORMATION
  Report Type: 
  Country: None (occurrence: None)
  Receive Date: 20041013
  Receipt Date: 20040924
  Transmission Date: 20050328
  Serious: Yes (Other)
  Sender: FDA-Public Use
  Company Number: USA040979235

PATIENT
  Age: 50 Year
  Sex: Female

DRUGS (5)
  1. HUMULIN 70/30 [Suspect]
     Dates: end: 20040910
  2. HUMULIN R [Suspect]
     Dates: end: 20040910
  3. HUMULIN N [Suspect]
  4. HUMALOG [Suspect]
     Dates: start: 20040910
  5. LANTUS [Concomitant]

REACTIONS (4)
  - BACK PAIN [None]
  - BLOOD GLUCOSE INCREASED [None]
  - GLAUCOMA [None]
  - RENAL DISORDER [None]
